FAERS Safety Report 4373541-3 (Version None)
Quarter: 2004Q1

REPORT INFORMATION
  Report Type: 
  Country: None (occurrence: None)
  Receive Date: 20040305
  Receipt Date: 20031106
  Transmission Date: 20041129
  Serious: Yes (Other)
  Sender: FDA-Public Use
  Company Number: 2003UW14668

PATIENT
  Age: 52 Year
  Sex: Male
  Weight: 96.1626 kg

DRUGS (4)
  1. CRESTOR [Suspect]
     Dosage: 10 MG PO
     Route: 048
     Dates: start: 20031010, end: 20030101
  2. GLYBURIDE [Concomitant]
  3. METFORMIN [Concomitant]
  4. PREVACID [Concomitant]

REACTIONS (4)
  - BLOOD CREATINE PHOSPHOKINASE INCREASED [None]
  - LOSS OF CONSCIOUSNESS [None]
  - MYALGIA [None]
  - VIRAL INFECTION [None]
